FAERS Safety Report 21667795 (Version 1)
Quarter: 2022Q4

REPORT INFORMATION
  Report Type: Spontaneous
  Country: None (occurrence: US)
  Receive Date: 20221201
  Receipt Date: 20221201
  Transmission Date: 20230113
  Serious: No
  Sender: FDA-Public Use
  Company Number: US-Mission Pharmacal Company-2135428

PATIENT
  Age: 53 Year
  Sex: Male

DRUGS (3)
  1. THIOLA [Suspect]
     Active Substance: TIOPRONIN
     Indication: Cystinuria
     Route: 048
     Dates: start: 20140903, end: 20221120
  2. SERTRALINE HYDROCHLORIDE [Concomitant]
     Active Substance: SERTRALINE HYDROCHLORIDE
  3. UROCIT-K [Concomitant]
     Active Substance: POTASSIUM CITRATE
     Route: 048

REACTIONS (1)
  - Rash [Recovered/Resolved]
